FAERS Safety Report 7621056-9 (Version None)
Quarter: 2011Q3

REPORT INFORMATION
  Report Type: 
  Country: None (occurrence: None)
  Receive Date: 20110719
  Receipt Date: 20100616
  Transmission Date: 20111222
  Serious: No
  Sender: FDA-Public Use
  Company Number: US-KINGPHARMUSA00001-K201000749

PATIENT
  Age: 42 Year
  Sex: Female

DRUGS (8)
  1. LEVOXYL [Suspect]
     Indication: HYPOTHYROIDISM
     Dosage: 175 MCG, QD
     Route: 048
     Dates: start: 20100501
  2. LANTUS [Concomitant]
     Indication: DIABETES MELLITUS
     Dosage: UNK
     Route: 058
  3. AMBIEN [Concomitant]
     Indication: SLEEP DISORDER
     Dosage: UNK
     Route: 048
  4. AVALIDE [Concomitant]
     Indication: BLOOD PRESSURE INCREASED
     Dosage: UNK
     Route: 048
  5. CYMBALTA [Concomitant]
     Indication: DEPRESSION
     Dosage: UNK
  6. IRON SULFATETHIAMIN COMPOUND TAB [Concomitant]
     Indication: ANAEMIA
     Dosage: UNK
  7. JANUMET [Concomitant]
     Indication: DIABETES MELLITUS
     Dosage: UNK
     Route: 048
  8. HUMALOG [Concomitant]
     Indication: DIABETES MELLITUS
     Dosage: UNK
     Route: 058

REACTIONS (9)
  - PANIC ATTACK [None]
  - DIARRHOEA [None]
  - DRUG INTOLERANCE [None]
  - FEELING ABNORMAL [None]
  - NAUSEA [None]
  - FLUSHING [None]
  - FEELING HOT [None]
  - DRY MOUTH [None]
  - VOMITING [None]
